FAERS Safety Report 20987857 (Version 2)
Quarter: 2022Q2

REPORT INFORMATION
  Report Type: Spontaneous
  Country: US (occurrence: US)
  Receive Date: 20220621
  Receipt Date: 20220630
  Transmission Date: 20220721
  Serious: No
  Sender: FDA-Public Use
  Company Number: US-BAYER-2022A084197

PATIENT
  Age: 94 Year
  Sex: Female

DRUGS (2)
  1. KERENDIA [Suspect]
     Active Substance: FINERENONE
     Indication: Diabetes mellitus
     Dosage: 5 MG
     Route: 048
     Dates: end: 202205
  2. KERENDIA [Suspect]
     Active Substance: FINERENONE
     Indication: Diabetes mellitus
     Dosage: 10 MG
     Dates: start: 202205

REACTIONS (4)
  - Weight increased [None]
  - Gait disturbance [None]
  - Back pain [None]
  - Product use issue [None]

NARRATIVE: CASE EVENT DATE: 20220501
